FAERS Safety Report 8000071-X (Version None)
Quarter: 2011Q4

REPORT INFORMATION
  Report Type: 
  Country: None (occurrence: None)
  Receive Date: 20111220
  Receipt Date: 20111220
  Transmission Date: 20120403
  Serious: Yes (Other)
  Sender: FDA-Public Use
  Company Number: None

PATIENT
  Sex: Female
  Weight: 70.7611 kg

DRUGS (3)
  1. VOLTAREN [Suspect]
     Indication: MUSCULOSKELETAL STIFFNESS
     Dosage: SMALL AMOUNT 3-4 X DAY
     Dates: start: 20111108
  2. VOLTAREN [Suspect]
     Indication: MUSCULOSKELETAL STIFFNESS
     Dosage: SMALL AMOUNT 3-4 X DAY
     Dates: start: 20111109
  3. VOLTAREN [Suspect]
     Indication: MUSCULOSKELETAL STIFFNESS
     Dosage: SMALL AMOUNT 3-4 X DAY
     Dates: start: 20111110

REACTIONS (5)
  - EYELID OEDEMA [None]
  - PAIN [None]
  - RASH PRURITIC [None]
  - FEELING ABNORMAL [None]
  - INSOMNIA [None]
